FAERS Safety Report 19933390 (Version 2)
Quarter: 2021Q4

REPORT INFORMATION
  Report Type: Spontaneous
  Country: US (occurrence: US)
  Receive Date: 20211008
  Receipt Date: 20211014
  Transmission Date: 20220303
  Serious: Yes (Other)
  Sender: FDA-Public Use
  Company Number: US-PFM-2021-09762

PATIENT
  Sex: Female
  Weight: 6 kg

DRUGS (1)
  1. HEMANGEOL [Suspect]
     Active Substance: PROPRANOLOL HYDROCHLORIDE
     Indication: Haemangioma
     Dosage: 0.9 ML, BID (2/DAY)
     Route: 048

REACTIONS (3)
  - Ulcerated haemangioma [Not Recovered/Not Resolved]
  - Nasal congestion [Unknown]
  - Cough [Unknown]
